FAERS Safety Report 7050158-3 (Version None)
Quarter: 2010Q4

REPORT INFORMATION
  Report Type: 
  Country: None (occurrence: None)
  Receive Date: 20101018
  Receipt Date: 20101008
  Transmission Date: 20110411
  Serious: Yes (Other)
  Sender: FDA-Public Use
  Company Number: US-ASTRAZENECA-2010SE35062

PATIENT
  Age: 18799 Day
  Sex: Male
  Weight: 79.4 kg

DRUGS (12)
  1. CRESTOR [Suspect]
     Indication: BLOOD CHOLESTEROL INCREASED
     Route: 048
     Dates: start: 20070109
  2. CRESTOR [Suspect]
     Indication: HYPERLIPIDAEMIA
     Route: 048
     Dates: start: 20070109
  3. CRESTOR [Suspect]
     Route: 048
     Dates: start: 20090301, end: 20100501
  4. CRESTOR [Suspect]
     Route: 048
     Dates: start: 20090301, end: 20100501
  5. LEXAPRO [Concomitant]
     Indication: DEPRESSION
     Dosage: 10
     Route: 048
     Dates: start: 20070308
  6. ZANTAC [Concomitant]
  7. CIALIS [Concomitant]
  8. FLOMAX [Concomitant]
  9. WELLBUTRIN [Concomitant]
  10. HYTRIN [Concomitant]
  11. CLARITIN [Concomitant]
  12. AVODART [Concomitant]
     Indication: BENIGN PROSTATIC HYPERPLASIA
     Route: 048
     Dates: start: 20060708

REACTIONS (1)
  - MUSCLE RUPTURE [None]
